FAERS Safety Report 5388451-2 (Version None)
Quarter: 2007Q3

REPORT INFORMATION
  Report Type: 
  Country: None (occurrence: None)
  Receive Date: 20070711
  Receipt Date: 20070627
  Transmission Date: 20080115
  Serious: Yes (Other)
  Sender: FDA-Public Use
  Company Number: 16869

PATIENT
  Age: 20 Year
  Sex: Male

DRUGS (2)
  1. METHOTREXATE [Suspect]
     Indication: JUVENILE ARTHRITIS
     Dosage: 20 MG WEEKLY
  2. PREDNISOLONE [Suspect]
     Indication: JUVENILE ARTHRITIS
     Dosage: 5 MG QD PO
     Route: 048

REACTIONS (3)
  - GENERAL PHYSICAL HEALTH DETERIORATION [None]
  - MYOPERICARDITIS [None]
  - NO THERAPEUTIC RESPONSE [None]
